FAERS Safety Report 9915328 (Version 1)
Quarter: 2014Q1

REPORT INFORMATION
  Report Type: Report from Study
  Country: US (occurrence: US)
  Receive Date: 20140221
  Receipt Date: 20140221
  Transmission Date: 20141002
  Serious: Yes (Other)
  Sender: FDA-Public Use
  Company Number: US-ROCHE-1336859

PATIENT
  Age: 69 Year
  Sex: Female

DRUGS (12)
  1. LUCENTIS [Suspect]
     Indication: DIABETIC RETINAL OEDEMA
     Route: 050
     Dates: start: 20110301
  2. LUCENTIS [Suspect]
     Indication: DIABETIC RETINOPATHY
  3. AVASTIN [Suspect]
     Indication: PRODUCT USED FOR UNKNOWN INDICATION
     Route: 065
     Dates: start: 20110419
  4. LIRAGLUTIDE [Concomitant]
  5. PLAVIX [Concomitant]
  6. LIPITOR [Concomitant]
  7. DORZOLAMIDE [Concomitant]
     Dosage: BID OU
     Route: 065
  8. CLONIDINE [Concomitant]
  9. ZYMAR [Concomitant]
     Dosage: QID OD
     Route: 065
  10. ALOXI [Concomitant]
     Dosage: GTT OD
     Route: 065
  11. METFORMIN [Concomitant]
     Route: 065
  12. CIPROFLOXACIN [Concomitant]
     Dosage: OD
     Route: 047

REACTIONS (5)
  - Diabetic retinal oedema [Unknown]
  - Eye pruritus [Unknown]
  - Vision blurred [Unknown]
  - Foreign body sensation in eyes [Unknown]
  - Vitreous floaters [Unknown]
